FAERS Safety Report 9274893 (Version 1)
Quarter: 2013Q2

REPORT INFORMATION
  Report Type: Spontaneous
  Country: US (occurrence: US)
  Receive Date: 20130507
  Receipt Date: 20130507
  Transmission Date: 20140414
  Serious: Yes (Other)
  Sender: FDA-Public Use
  Company Number: US-GENZYME-THYR-1000446

PATIENT
  Age: 56 Year
  Sex: Female
  Weight: 65.76 kg

DRUGS (9)
  1. THYROGEN [Suspect]
     Indication: DIAGNOSTIC PROCEDURE
     Dosage: 0.9 MG, QD
     Route: 030
     Dates: start: 20100118, end: 20100119
  2. LEVOXYL [Suspect]
     Indication: PRODUCT USED FOR UNKNOWN INDICATION
     Dosage: 112 MCG, QD
     Route: 065
     Dates: end: 20100427
  3. LEVOXYL [Suspect]
     Dosage: 100 MCG, QD
     Dates: start: 20100427, end: 20101124
  4. LEVOXYL [Suspect]
     Dosage: 112 MCG, QD
     Dates: start: 20101124
  5. ATENOLOL [Concomitant]
     Indication: PRODUCT USED FOR UNKNOWN INDICATION
     Dosage: 50 MG, QD
     Route: 065
  6. FISH OIL [Concomitant]
     Indication: PRODUCT USED FOR UNKNOWN INDICATION
     Dosage: UNK
     Route: 065
  7. TRIAMTERENE AND HYDROCHLOROTHIAZID [Concomitant]
     Indication: PRODUCT USED FOR UNKNOWN INDICATION
     Dosage: 75/80 QD
     Route: 065
  8. METFORMIN [Concomitant]
     Indication: PRODUCT USED FOR UNKNOWN INDICATION
     Dosage: 500 MG, QD
     Route: 065
  9. PRAVACHOL [Concomitant]
     Indication: PRODUCT USED FOR UNKNOWN INDICATION
     Dosage: 80 UNK, QD
     Route: 065

REACTIONS (5)
  - Tongue neoplasm malignant stage unspecified [Unknown]
  - Thyroxine increased [Unknown]
  - Swollen tongue [Not Recovered/Not Resolved]
  - Migraine [Unknown]
  - Burning sensation [Unknown]
